FAERS Safety Report 11997719 (Version 1)
Quarter: 2016Q1

REPORT INFORMATION
  Report Type: Spontaneous
  Country: US (occurrence: None)
  Receive Date: 20160203
  Receipt Date: 20160203
  Transmission Date: 20160526
  Serious: No
  Sender: FDA-Public Use
  Company Number: None

PATIENT
  Age: 25 Month
  Sex: Male
  Weight: 15.4 kg

DRUGS (3)
  1. SALINE ORAL OTC [Concomitant]
     Active Substance: SODIUM CHLORIDE
  2. ALPROLIX [Suspect]
     Active Substance: EFTRENONACOG ALFA
     Indication: FACTOR IX DEFICIENCY
     Dosage: 500-1000 IU ONCE A WEEK +PRN INTRAVENOUS
     Route: 042
     Dates: start: 20151008, end: 20160115
  3. HEPARIN [Concomitant]
     Active Substance: HEPARIN SODIUM

REACTIONS (3)
  - Flushing [None]
  - Rash erythematous [None]
  - Vomiting [None]

NARRATIVE: CASE EVENT DATE: 20160115
